FAERS Safety Report 11946498 (Version 1)
Quarter: 2016Q1

REPORT INFORMATION
  Report Type: Spontaneous
  Country: US (occurrence: US)
  Receive Date: 20160125
  Receipt Date: 20160125
  Transmission Date: 20160526
  Serious: No
  Sender: FDA-Public Use
  Company Number: US-JNJFOC-20160108223

PATIENT
  Age: 70 Year
  Sex: Female
  Weight: 61.69 kg

DRUGS (2)
  1. WOMENS ROGAINE UNSCENTED [Suspect]
     Active Substance: MINOXIDIL
     Route: 061
  2. WOMENS ROGAINE UNSCENTED [Suspect]
     Active Substance: MINOXIDIL
     Indication: ALOPECIA
     Dosage: MORE THAN THE RECOMMENDED DOSE
     Route: 061
     Dates: start: 20151201

REACTIONS (5)
  - Drug administered at inappropriate site [Unknown]
  - Off label use [Unknown]
  - Overdose [Unknown]
  - Product quality issue [Unknown]
  - Product formulation issue [Unknown]

NARRATIVE: CASE EVENT DATE: 20151201
